FAERS Safety Report 5243446-4 (Version None)
Quarter: 2007Q1

REPORT INFORMATION
  Report Type: 
  Country: None (occurrence: None)
  Receive Date: 20070215
  Receipt Date: 20070129
  Transmission Date: 20070707
  Serious: Yes (Hospitalization)
  Sender: FDA-Public Use
  Company Number: 8021807

PATIENT
  Age: 68 Year
  Sex: Male

DRUGS (4)
  1. KEPPRA [Suspect]
     Indication: EPILEPSY
     Dosage: 1000 MG PO
     Route: 048
     Dates: start: 20061211
  2. TEGRETOL [Suspect]
     Indication: EPILEPSY
     Dosage: NI PO
     Route: 048
     Dates: end: 20061210
  3. HEPARIN [Suspect]
     Dosage: NI IV
     Route: 042
     Dates: start: 20061206, end: 20061201
  4. COUMADIN [Suspect]
     Dosage: NI PO
     Route: 048
     Dates: start: 20061201

REACTIONS (2)
  - HAEMATOMA [None]
  - THROMBOCYTOPENIA [None]
